FAERS Safety Report 9993510 (Version 1)
Quarter: 2014Q1

REPORT INFORMATION
  Report Type: Spontaneous
  Country: GB (occurrence: GB)
  Receive Date: 20140310
  Receipt Date: 20140310
  Transmission Date: 20141002
  Serious: Yes (Other)
  Sender: FDA-Public Use
  Company Number: GB-WATSON-2014-03888

PATIENT
  Age: 12 Year
  Sex: Female
  Weight: 50 kg

DRUGS (3)
  1. VALPROIC ACID (UNKNOWN) [Suspect]
     Indication: EPILEPSY
     Dosage: 9 ML, BID; CONTINUING
     Route: 048
  2. LAMOTRIGINE (UNKNOWN) [Suspect]
     Indication: EPILEPSY
     Dosage: 60 MG, BID; MORNING AND NIGHT. CONTINUING.
     Route: 048
  3. MIDAZOLAM (UNKNOWN) [Suspect]
     Indication: EPILEPSY
     Dosage: 5 MG, UNKNOWN
     Route: 048

REACTIONS (1)
  - Rash erythematous [Not Recovered/Not Resolved]
